FAERS Safety Report 8517218-9 (Version None)
Quarter: 2012Q3

REPORT INFORMATION
  Report Type: 
  Country: None (occurrence: None)
  Receive Date: 20120718
  Receipt Date: 20120717
  Transmission Date: 20120928
  Serious: Yes (Other)
  Sender: FDA-Public Use
  Company Number: JP-009507513-1207JPN005120

PATIENT

DRUGS (1)
  1. MENESIT TABLETS - 250 [Suspect]
     Dosage: DAILY DOSAGE UNKNOWN
     Route: 048

REACTIONS (1)
  - LOSS OF CONSCIOUSNESS [None]
